FAERS Safety Report 11431670 (Version 1)
Quarter: 2015Q3

REPORT INFORMATION
  Report Type: Spontaneous
  Country: US (occurrence: US)
  Receive Date: 20150828
  Receipt Date: 20150828
  Transmission Date: 20151125
  Serious: No
  Sender: FDA-Public Use
  Company Number: US-PFIZER INC-2015274671

PATIENT
  Age: 32 Year
  Sex: Female

DRUGS (4)
  1. VOLTAREN [Suspect]
     Active Substance: DICLOFENAC SODIUM
     Indication: INFLAMMATION
     Dosage: 2 G, SINGLE
     Route: 061
     Dates: start: 20150801, end: 20150801
  2. NAPROXEN. [Suspect]
     Active Substance: NAPROXEN
     Dosage: 500 ML, UNK
     Dates: start: 20150802, end: 20150802
  3. ADVIL [Suspect]
     Active Substance: IBUPROFEN
     Dosage: UNK
     Dates: start: 20150801, end: 20150801
  4. VOLTAREN [Suspect]
     Active Substance: DICLOFENAC SODIUM
     Dosage: 4 G, 2X/DAY
     Route: 061
     Dates: start: 20150801, end: 20150802

REACTIONS (10)
  - Bone pain [Unknown]
  - Product use issue [Unknown]
  - Limb discomfort [Recovered/Resolved]
  - Drug administered at inappropriate site [Unknown]
  - Wrong technique in product usage process [Unknown]
  - Dyskinesia [Recovered/Resolved]
  - Gait disturbance [Recovered/Resolved]
  - Paraesthesia [Recovered/Resolved]
  - Arthralgia [Recovered/Resolved]
  - Musculoskeletal pain [Recovered/Resolved]

NARRATIVE: CASE EVENT DATE: 201508
